FAERS Safety Report 7748393-1 (Version None)
Quarter: 2011Q3

REPORT INFORMATION
  Report Type: 
  Country: None (occurrence: None)
  Receive Date: 20110913
  Receipt Date: 20110901
  Transmission Date: 20111222
  Serious: Yes (Hospitalization, Other)
  Sender: FDA-Public Use
  Company Number: US-RB-016474-10

PATIENT
  Age: 41 Year
  Sex: Female

DRUGS (1)
  1. SUBOXONE [Suspect]
     Indication: PRODUCT USED FOR UNKNOWN INDICATION
     Dosage: DOSING INFORMATION UNKNOWN.
     Route: 065

REACTIONS (8)
  - DRUG DETOXIFICATION [None]
  - INTENTIONAL DRUG MISUSE [None]
  - ANXIETY [None]
  - UNDERDOSE [None]
  - NAUSEA [None]
  - HEADACHE [None]
  - PAIN IN EXTREMITY [None]
  - BIPOLAR DISORDER [None]
